FAERS Safety Report 7450719-3 (Version None)
Quarter: 2011Q2

REPORT INFORMATION
  Report Type: 
  Country: None (occurrence: None)
  Receive Date: 20110502
  Receipt Date: 20110414
  Transmission Date: 20111010
  Serious: Yes (Disabling)
  Sender: FDA-Public Use
  Company Number: IT-ABBOTT-11P-083-0705822-00

PATIENT
  Sex: Male

DRUGS (1)
  1. VECLAM TABLETS [Suspect]
     Indication: PRODUCT USED FOR UNKNOWN INDICATION
     Dates: start: 20101201

REACTIONS (2)
  - ANOSMIA [None]
  - AGEUSIA [None]
